FAERS Safety Report 8935622 (Version 1)
Quarter: 2012Q4

REPORT INFORMATION
  Report Type: 
  Country: BR (occurrence: BR)
  Receive Date: 20121130
  Receipt Date: 20121130
  Transmission Date: 20130627
  Serious: Yes (Hospitalization, Other)
  Sender: FDA-Public Use
  Company Number: BR-PFIZER INC-2012299147

PATIENT
  Age: 23 Year
  Sex: Female

DRUGS (1)
  1. LYRICA [Suspect]
     Dosage: 75 mg (one capsule), 2x/day
     Route: 048
     Dates: start: 2010

REACTIONS (2)
  - Intervertebral disc protrusion [Not Recovered/Not Resolved]
  - Pain [Unknown]
